FAERS Safety Report 25287315 (Version 1)
Quarter: 2025Q2

REPORT INFORMATION
  Report Type: Spontaneous
  Country: US (occurrence: None)
  Receive Date: 20250508
  Receipt Date: 20250508
  Transmission Date: 20250716
  Serious: Yes (Hospitalization)
  Sender: FDA-CTU
  Company Number: None

PATIENT
  Age: 75 Year
  Sex: Female
  Weight: 238.14 kg

DRUGS (2)
  1. HYDROCHLOROTHIAZIDE\LISINOPRIL [Suspect]
     Active Substance: HYDROCHLOROTHIAZIDE\LISINOPRIL
  2. Ben Diphenhydramine [Concomitant]

REACTIONS (3)
  - Confusional state [None]
  - Brain oedema [None]
  - Coma [None]

NARRATIVE: CASE EVENT DATE: 20240803
